FAERS Safety Report 4481014-2 (Version None)
Quarter: 2004Q4

REPORT INFORMATION
  Report Type: 
  Country: None (occurrence: None)
  Receive Date: 20041020
  Receipt Date: 20041020
  Transmission Date: 20050328
  Serious: Yes (Death)
  Sender: FDA-Public Use
  Company Number: None

PATIENT
  Age: 66 Year
  Sex: Male
  Weight: 77.1115 kg

DRUGS (2)
  1. PROZAC [Suspect]
     Indication: DEPRESSION
     Dosage: 20 MGS DAILY ORAL
     Route: 048
     Dates: start: 20000716, end: 20000716
  2. PROZAC [Suspect]
     Indication: DEPRESSION
     Dosage: 40 MGS DAILY ORAL
     Route: 048
     Dates: start: 20000717, end: 20000720

REACTIONS (11)
  - AGITATION [None]
  - COMPLETED SUICIDE [None]
  - DEHYDRATION [None]
  - HYPERACUSIS [None]
  - IMPAIRED DRIVING ABILITY [None]
  - IMPAIRED WORK ABILITY [None]
  - MARKEDLY REDUCED DIETARY INTAKE [None]
  - PARANOIA [None]
  - PHOTOSENSITIVITY REACTION [None]
  - RESTLESSNESS [None]
  - SOCIAL AVOIDANT BEHAVIOUR [None]
